FAERS Safety Report 15313519 (Version 1)
Quarter: 2018Q3

REPORT INFORMATION
  Report Type: Spontaneous
  Country: GB (occurrence: GB)
  Receive Date: 20180824
  Receipt Date: 20180824
  Transmission Date: 20181010
  Serious: Yes (Hospitalization)
  Sender: FDA-Public Use
  Company Number: GB-TEVA-2018-GB-946128

PATIENT
  Age: 77 Year
  Sex: Male

DRUGS (19)
  1. WARFARIN [Suspect]
     Active Substance: WARFARIN
     Dosage: 9 MILLIGRAM DAILY; EXCEPT FRIDAYS WHICH IS 10MG
     Route: 065
  2. NOVOMIX [Concomitant]
     Active Substance: INSULIN ASPART
     Dosage: 10?11 UNITS
     Route: 065
  3. CHEMYDUR XL [Concomitant]
     Dosage: 120 MILLIGRAM DAILY;
     Route: 065
  4. GLYCERYL TRINITRATE [Concomitant]
     Active Substance: NITROGLYCERIN
     Dosage: DISSOLVE ONE TABLET UNDER THE TONGUE
     Route: 060
  5. ATORVASTATIN [Suspect]
     Active Substance: ATORVASTATIN
     Dosage: 20 MILLIGRAM DAILY;
     Route: 065
  6. METFORMIN [Concomitant]
     Active Substance: METFORMIN HYDROCHLORIDE
     Dosage: 2000 MILLIGRAM DAILY;
     Route: 065
  7. BISOPROLOL [Concomitant]
     Active Substance: BISOPROLOL
     Dosage: 5 MILLIGRAM DAILY;
     Route: 065
  8. MONTELUKAST [Concomitant]
     Active Substance: MONTELUKAST SODIUM
     Dosage: 10 MILLIGRAM DAILY; AT NIGHT
     Route: 065
  9. COCODAMOL [Concomitant]
     Active Substance: ACETAMINOPHEN\CODEINE PHOSPHATE
     Dosage: 30MG/500MG. ONE OR TWO TO BE TAKEN FOUR TIMES A DAY
     Route: 065
  10. DIFFLAM [Concomitant]
     Active Substance: BENZYDAMINE HYDROCHLORIDE
     Dosage: GARGLE WITH 10?15MLS AND SPIT OUT
     Route: 048
  11. SITAGLIPTIN [Concomitant]
     Active Substance: SITAGLIPTIN
     Dosage: 50 MILLIGRAM DAILY;
     Route: 065
  12. NICORANDIL [Concomitant]
     Active Substance: NICORANDIL
     Dosage: 40 MILLIGRAM DAILY;
     Route: 065
  13. RANITIDINE. [Concomitant]
     Active Substance: RANITIDINE
     Dosage: 150 MILLIGRAM DAILY;
     Route: 065
  14. TRIMBOW [Concomitant]
     Dosage: 4 DOSAGE FORMS DAILY; PUFFS. 87 MICROGRAMS/DOSE/5 MICROGRAMS/DOSE/ 9 MICROGRAMS/DOSE
     Route: 055
  15. BUMETANIDE. [Concomitant]
     Active Substance: BUMETANIDE
     Dosage: 5 MILLIGRAM DAILY; THREE TO BE TAKEN EACH MORNING AND TWO AT LUNCHTIME
     Route: 065
  16. SALBUTAMOL [Concomitant]
     Active Substance: ALBUTEROL
     Dosage: PUFFS
     Route: 055
  17. LOSARTAN. [Concomitant]
     Active Substance: LOSARTAN
  18. DICLOFENAC [Concomitant]
     Active Substance: DICLOFENAC
     Dosage: 3 DOSAGE FORMS DAILY;
     Route: 061
  19. GLANDOSANE [Concomitant]
     Dosage: AS DIRECTED
     Route: 048

REACTIONS (1)
  - Epistaxis [Recovered/Resolved]
